FAERS Safety Report 4582028-4 (Version None)
Quarter: 2005Q1

REPORT INFORMATION
  Report Type: 
  Country: None (occurrence: None)
  Receive Date: 20050119
  Receipt Date: 20040615
  Transmission Date: 20050727
  Serious: Yes (Hospitalization)
  Sender: FDA-Public Use
  Company Number: A03200401930

PATIENT
  Age: 75 Year
  Sex: Male
  Weight: 87.0906 kg

DRUGS (11)
  1. PLAVIX [Suspect]
     Indication: ANGIOPLASTY
     Dosage: 75 MG QD - ORAL
     Route: 048
     Dates: start: 20040501, end: 20040507
  2. PLAVIX [Suspect]
     Indication: STENT PLACEMENT
     Dosage: 75 MG QD - ORAL
     Route: 048
     Dates: start: 20040501, end: 20040507
  3. ACETYLSALICYLIC ACID SRT [Concomitant]
  4. METOPROLOL SUCCINATE [Concomitant]
  5. SIMVASTATIN [Concomitant]
  6. RAMIPRIL [Concomitant]
  7. FUROSEMIDE [Concomitant]
  8. NITROGLYCERIN [Concomitant]
  9. ALFUZOSIN YDROCHLORIDE [Concomitant]
  10. POTASSIUM CHLORIDE [Concomitant]
  11. GLYBURIDE [Concomitant]

REACTIONS (5)
  - ANAEMIA [None]
  - BLADDER SPASM [None]
  - FAECAL OCCULT BLOOD POSITIVE [None]
  - HAEMATURIA TRAUMATIC [None]
  - URINARY RETENTION [None]
